FAERS Safety Report 7206279-5 (Version None)
Quarter: 2011Q1

REPORT INFORMATION
  Report Type: 
  Country: None (occurrence: None)
  Receive Date: 20110103
  Receipt Date: 20101222
  Transmission Date: 20110831
  Serious: Yes (Other)
  Sender: FDA-Public Use
  Company Number: PHHY2010JP88298

PATIENT
  Age: 50 Year
  Sex: Female

DRUGS (7)
  1. TACROLIMUS [Concomitant]
     Indication: LIVER TRANSPLANT
  2. NAFAMOSTAT MESILATE [Concomitant]
  3. PROSTAGLANDIN E2 [Concomitant]
  4. RITUXIMAB [Concomitant]
     Indication: LIVER TRANSPLANT
  5. CYCLOSPORINE [Suspect]
     Indication: LIVER TRANSPLANT
  6. SIMULECT [Suspect]
     Indication: LIVER TRANSPLANT
     Route: 042
  7. CELL CEPT [Concomitant]
     Indication: LIVER TRANSPLANT

REACTIONS (3)
  - ABDOMINAL WALL HAEMORRHAGE [None]
  - THROMBOTIC MICROANGIOPATHY [None]
  - LIVER DISORDER [None]
